FAERS Safety Report 13897021 (Version 1)
Quarter: 2017Q3

REPORT INFORMATION
  Report Type: Spontaneous
  Country: US (occurrence: US)
  Receive Date: 20170823
  Receipt Date: 20170823
  Transmission Date: 20171127
  Serious: No
  Sender: FDA-Public Use
  Company Number: PHEH2017US025471

PATIENT
  Sex: Male

DRUGS (2)
  1. ATENOLOL TABLETS USP [Suspect]
     Active Substance: ATENOLOL
     Dosage: 25 MG, UNK
     Route: 065
  2. ATENOLOL TABLETS USP [Suspect]
     Active Substance: ATENOLOL
     Indication: PRODUCT USED FOR UNKNOWN INDICATION
     Dosage: 50 MG, UNK
     Route: 065

REACTIONS (1)
  - Dizziness [Recovering/Resolving]
